FAERS Safety Report 8949855 (Version 1)
Quarter: 2012Q4

REPORT INFORMATION
  Report Type: 
  Country: DK (occurrence: FR)
  Receive Date: 20121206
  Receipt Date: 20121206
  Transmission Date: 20130627
  Serious: Yes (Other)
  Sender: FDA-Public Use
  Company Number: FR-FRI-1000040848

PATIENT
  Age: 33 Year
  Sex: Female

DRUGS (2)
  1. ESCITALOPRAM [Suspect]
     Dates: start: 20121029
  2. LYSANXIA [Concomitant]

REACTIONS (1)
  - Vaginal haemorrhage [Unknown]
